FAERS Safety Report 9742589 (Version 1)
Quarter: 2013Q4

REPORT INFORMATION
  Report Type: Spontaneous
  Country: US (occurrence: US)
  Receive Date: 20131210
  Receipt Date: 20131210
  Transmission Date: 20140711
  Serious: No
  Sender: FDA-Public Use
  Company Number: US-GILEAD-2009-0024491

PATIENT
  Sex: Female
  Weight: 65.32 kg

DRUGS (17)
  1. LETAIRIS [Suspect]
     Indication: PULMONARY ARTERIAL HYPERTENSION
     Route: 048
     Dates: start: 20090721
  2. CYCLOBENZAPRINE [Concomitant]
  3. ALBUTEROL [Concomitant]
  4. SERTRALINE HCL [Concomitant]
  5. CLONAZEPAM [Concomitant]
  6. GLYBURIDE [Concomitant]
  7. VITAMIN B12 [Concomitant]
  8. FENOFIBRATE [Concomitant]
  9. DOCUSATE SODIUM [Concomitant]
  10. AMMONIUM LACTATE 12% CREAM [Concomitant]
  11. POLYETHYLENE GLYCOL 1000 [Concomitant]
  12. BISACODYL [Concomitant]
  13. HYDROCODONE-APAP [Concomitant]
  14. PSEUDOEPHEDRINE [Concomitant]
  15. OMEPRAZOLE [Concomitant]
  16. OXYGEN [Concomitant]
  17. FOLIC ACID [Concomitant]

REACTIONS (2)
  - Fluid retention [Unknown]
  - Dyspnoea [Unknown]
